FAERS Safety Report 18545564 (Version 1)
Quarter: 2020Q4

REPORT INFORMATION
  Report Type: Spontaneous
  Country: US (occurrence: US)
  Receive Date: 20201125
  Receipt Date: 20201125
  Transmission Date: 20210114
  Serious: Yes (Hospitalization, Other)
  Sender: FDA-Public Use
  Company Number: US-BEXIMCO-2020BEX00059

PATIENT
  Age: 81 Year
  Sex: Male
  Weight: 102.49 kg

DRUGS (20)
  1. SYMBICORT [Concomitant]
     Active Substance: BUDESONIDE\FORMOTEROL FUMARATE DIHYDRATE
     Dosage: 2 DOSAGE UNITS (2 PUFFS), 2X/DAY
  2. UNSPECIFIED ^SPRAY TO CLEAN OUT SINUSES^ [Concomitant]
     Dosage: UNK
  3. METOPROLOL SUCCINATE. [Concomitant]
     Active Substance: METOPROLOL SUCCINATE
     Dosage: 100 MG, 1X/DAY EVERY MORNING
     Route: 048
  4. AMLODIPINE [Concomitant]
     Active Substance: AMLODIPINE BESYLATE
     Dosage: 2.5 MG, 2X/DAY
     Route: 048
  5. ASPIRIN. [Concomitant]
     Active Substance: ASPIRIN
     Dosage: 81 MG, 1X/DAY EVERY EVENING
     Route: 048
  6. METFORMIN HYDROCHLORIDE. [Suspect]
     Active Substance: METFORMIN HYDROCHLORIDE
     Indication: TYPE 2 DIABETES MELLITUS
     Dosage: 500 MG, 2X/DAY
     Route: 048
  7. RAMIPRIL. [Concomitant]
     Active Substance: RAMIPRIL
     Dosage: 10 MG, 1X/DAY EVERY MORNING
     Route: 048
  8. ALBUTEROL. [Concomitant]
     Active Substance: ALBUTEROL
     Indication: DYSPNOEA
     Dosage: 180 ?G, 4X/DAY AS NEEDED FOR SHORTNESS OF BREATH
  9. ROSUVASTATIN. [Concomitant]
     Active Substance: ROSUVASTATIN
     Dosage: 10 MG, 1X/DAY EVERY EVENING
     Route: 048
  10. SENNOSIDES. [Concomitant]
     Active Substance: SENNOSIDES
     Indication: CONSTIPATION
     Dosage: 8.6 MG, 1X/DAY AS NEEDED FOR CONSTIPATION
     Route: 048
  11. GLYBURIDE. [Concomitant]
     Active Substance: GLYBURIDE
     Dosage: 2 MG, 1X/DAY WITH BREAKFAST WITH 4 MG FOR TOTAL OF 6 MG DAILY
     Route: 048
  12. GLYBURIDE. [Concomitant]
     Active Substance: GLYBURIDE
     Dosage: 2 MG, 1X/DAY WITH BREAKFAST WITH 4 MG FOR TOTAL OF 6 MG DAILY
     Route: 048
  13. ELIQUIS [Concomitant]
     Active Substance: APIXABAN
     Dosage: 5 MG, 2X/DAY
     Route: 048
  14. GLYBURIDE. [Concomitant]
     Active Substance: GLYBURIDE
     Dosage: 4 MG, 1X/DAY WITH BREAKFAST ALONG WITH 2 MG FOR TOTAL OF 6 MG DAILY
     Route: 048
  15. GLYBURIDE. [Concomitant]
     Active Substance: GLYBURIDE
     Dosage: 4 MG, 1X/DAY WITH BREAKFAST ALONG WITH 2 MG FOR TOTAL OF 6 MG DAILY
     Route: 048
  16. ACETAMINOPHEN. [Concomitant]
     Active Substance: ACETAMINOPHEN
     Indication: PAIN
     Dosage: 650 MG, 4X/DAY (EVERY 6 HOURS) AS NEEDED FOR MILD PAIN 1-3/TEMP }100.4
     Route: 048
  17. LASIX [Concomitant]
     Active Substance: FUROSEMIDE
     Dosage: 20 MG, 1X/DAY EVERY EVENING
     Route: 048
  18. ACETAMINOPHEN. [Concomitant]
     Active Substance: ACETAMINOPHEN
     Indication: BODY TEMPERATURE INCREASED
  19. TRIAMCINOLONE ACETONIDE. [Concomitant]
     Active Substance: TRIAMCINOLONE ACETONIDE
     Indication: RASH PRURITIC
     Dosage: 1 DOSAGE UNITS (APPLICATION), 2X/DAY AS NEEDED FOR ITCH/RASH
     Route: 061
  20. METFORMIN HYDROCHLORIDE. [Suspect]
     Active Substance: METFORMIN HYDROCHLORIDE
     Dosage: 500 MG, 2X/DAY
     Route: 048
     Dates: start: 20200819

REACTIONS (17)
  - Pneumonia aspiration [Recovered/Resolved]
  - Hyperbilirubinaemia [Unknown]
  - Acute respiratory failure [Unknown]
  - Recalled product administered [Unknown]
  - Anaemia [Unknown]
  - Pulmonary hypertension [Recovered/Resolved]
  - Cholelithiasis [Unknown]
  - Chronic obstructive pulmonary disease [Unknown]
  - Weight increased [Recovered/Resolved]
  - Hyperglycaemia [Unknown]
  - Aortic stenosis [Unknown]
  - Emphysema [Unknown]
  - Mitral valve incompetence [Unknown]
  - Oral candidiasis [Unknown]
  - Pancreatitis acute [Recovered/Resolved]
  - Fluid retention [Recovered/Resolved]
  - Aortic valve calcification [Unknown]

NARRATIVE: CASE EVENT DATE: 202008
